FAERS Safety Report 11145454 (Version 1)
Quarter: 2015Q2

REPORT INFORMATION
  Report Type: Spontaneous
  Country: BR (occurrence: BR)
  Receive Date: 20150526
  Receipt Date: 20150526
  Transmission Date: 20150821
  Serious: Yes (Death)
  Sender: FDA-Public Use
  Company Number: BR-PFIZER INC-2015171692

PATIENT
  Age: 63 Year
  Sex: Male
  Weight: 82 kg

DRUGS (1)
  1. LIPITOR [Suspect]
     Active Substance: ATORVASTATIN CALCIUM
     Indication: BLOOD CHOLESTEROL
     Dosage: 1 TABLET, 1X/DAY
     Route: 048
     Dates: start: 2010

REACTIONS (1)
  - Accident at home [Fatal]

NARRATIVE: CASE EVENT DATE: 2013
